FAERS Safety Report 15260284 (Version 1)
Quarter: 2018Q3

REPORT INFORMATION
  Report Type: Report from Study
  Country: US (occurrence: US)
  Receive Date: 20180809
  Receipt Date: 20180809
  Transmission Date: 20181010
  Serious: Yes (Hospitalization, Other)
  Sender: FDA-Public Use
  Company Number: US-SA-2018SA168366

PATIENT
  Age: 45 Year
  Sex: Female

DRUGS (2)
  1. ALEMTUZUMAB [Suspect]
     Active Substance: ALEMTUZUMAB
     Indication: RELAPSING-REMITTING MULTIPLE SCLEROSIS
     Dosage: 12.5 MG, QD
     Route: 041
     Dates: start: 20180613, end: 20180615
  2. ALEMTUZUMAB [Suspect]
     Active Substance: ALEMTUZUMAB
     Dosage: 12.5 MG, QD
     Route: 041
     Dates: start: 20180618, end: 20180619

REACTIONS (5)
  - Hypotension [Recovered/Resolved]
  - Headache [Unknown]
  - Palpitations [Recovered/Resolved]
  - Blood pressure increased [Unknown]
  - Erythema [Unknown]

NARRATIVE: CASE EVENT DATE: 201806
